FAERS Safety Report 8541741-4 (Version None)
Quarter: 2012Q3

REPORT INFORMATION
  Report Type: 
  Country: None (occurrence: None)
  Receive Date: 20120726
  Receipt Date: 20120203
  Transmission Date: 20120928
  Serious: No
  Sender: FDA-Public Use
  Company Number: US-ASTRAZENECA-2011SE52286

PATIENT
  Age: 63 Year
  Sex: Female

DRUGS (2)
  1. SEROQUEL XR [Suspect]
     Route: 048
  2. SEROQUEL XR [Suspect]
     Route: 048

REACTIONS (10)
  - FEELING ABNORMAL [None]
  - MOOD SWINGS [None]
  - DRUG DOSE OMISSION [None]
  - TREMOR [None]
  - MOOD ALTERED [None]
  - ABDOMINAL DISCOMFORT [None]
  - MALAISE [None]
  - DEPRESSED MOOD [None]
  - DEPRESSION [None]
  - NAUSEA [None]
